FAERS Safety Report 17717671 (Version 1)
Quarter: 2020Q2

REPORT INFORMATION
  Report Type: Spontaneous
  Country: US (occurrence: US)
  Receive Date: 20200428
  Receipt Date: 20200428
  Transmission Date: 20200714
  Serious: No
  Sender: FDA-Public Use
  Company Number: US-GW PHARMA-202004USGW01521

PATIENT

DRUGS (1)
  1. EPIDIOLEX [Suspect]
     Active Substance: CANNABIDIOL
     Indication: SEIZURE
     Dosage: 250 MILLIGRAM, BID
     Route: 048
     Dates: start: 20190724

REACTIONS (2)
  - Abdominal pain upper [Unknown]
  - Gastrointestinal pain [Unknown]
